FAERS Safety Report 15209318 (Version 1)
Quarter: 2018Q4

REPORT INFORMATION
  Report Type: Spontaneous
  Country: IT (occurrence: IT)
  Receive Date: 20180727
  Receipt Date: 20180727
  Transmission Date: 20190204
  Serious: Yes (Hospitalization)
  Sender: FDA-Public Use
  Company Number: IT-PFIZER INC-2018300786

PATIENT
  Age: 51 Year
  Sex: Female

DRUGS (9)
  1. TAVOR (LORAZEPAM) [Suspect]
     Active Substance: LORAZEPAM
     Indication: PSYCHOMOTOR HYPERACTIVITY
     Dosage: 2.5 MG, SINGLE
     Route: 048
     Dates: start: 20180518, end: 20180518
  2. DEPAKIN [Concomitant]
     Active Substance: VALPROATE SODIUM
     Dosage: 1 G, 2X/DAY
     Route: 048
     Dates: start: 20170101
  3. TALOFEN [Suspect]
     Active Substance: PROMAZINE HYDROCHLORIDE
     Indication: PSYCHOMOTOR HYPERACTIVITY
     Dosage: 50 MG, SINGLE
     Route: 030
     Dates: start: 20180518, end: 20180518
  4. RIVOTRIL [Suspect]
     Active Substance: CLONAZEPAM
     Indication: PSYCHOMOTOR HYPERACTIVITY
     Dosage: 20 GTT, SINGLE
     Route: 048
     Dates: start: 20180518, end: 20180518
  5. DEPAKIN [Concomitant]
     Active Substance: VALPROATE SODIUM
     Dosage: 500 MG, 2X/DAY
     Route: 048
     Dates: start: 20170101
  6. LARGACTIL [Suspect]
     Active Substance: CHLORPROMAZINE
     Indication: PSYCHOMOTOR HYPERACTIVITY
     Dosage: 50 MG, SINGLE
     Route: 030
     Dates: start: 20180518, end: 20180518
  7. CARBOLITHIUM [Concomitant]
     Active Substance: LITHIUM CARBONATE
     Dosage: 600 MG, 1X/DAY
     Route: 048
     Dates: start: 20170101
  8. VALIUM [Suspect]
     Active Substance: DIAZEPAM
     Indication: PSYCHOMOTOR HYPERACTIVITY
     Dosage: 10 MG, SINGLE
     Route: 030
     Dates: start: 20180518, end: 20180518
  9. SYCREST [Concomitant]
     Active Substance: ASENAPINE MALEATE
     Dosage: 5 MG, 1X/DAY
     Route: 048
     Dates: start: 20170101

REACTIONS (4)
  - Dysarthria [Recovering/Resolving]
  - Tonic clonic movements [Recovering/Resolving]
  - Tachycardia [Recovering/Resolving]
  - Agitation [Recovering/Resolving]
